FAERS Safety Report 7413685-2 (Version None)
Quarter: 2011Q2

REPORT INFORMATION
  Report Type: 
  Country: None (occurrence: None)
  Receive Date: 20110413
  Receipt Date: 20110405
  Transmission Date: 20111010
  Serious: Yes (Hospitalization)
  Sender: FDA-Public Use
  Company Number: JP-ROCHE-746646

PATIENT
  Sex: Female
  Weight: 64 kg

DRUGS (26)
  1. ACTEMRA [Suspect]
     Route: 041
     Dates: start: 20100430, end: 20100730
  2. PREDONINE [Concomitant]
     Dosage: FORM: PER ORAL AGENT
     Route: 048
  3. PREDNISOLONE SODIUM SUCCINATE INJ [Concomitant]
     Route: 042
     Dates: start: 20100305, end: 20100305
  4. NORVASC [Concomitant]
     Dosage: FORM: PER ORAL AGENT
     Route: 048
  5. BAKTAR [Concomitant]
     Route: 048
     Dates: start: 20101027
  6. SIMVASTATIN [Concomitant]
     Route: 048
     Dates: end: 20100827
  7. ACTEMRA [Suspect]
     Route: 041
     Dates: start: 20100108, end: 20100108
  8. PREDNISOLONE SODIUM SUCCINATE INJ [Concomitant]
     Route: 042
     Dates: start: 20091113, end: 20091113
  9. PREDNISOLONE SODIUM SUCCINATE INJ [Concomitant]
     Route: 042
     Dates: start: 20091211, end: 20091211
  10. FOLIC ACID [Concomitant]
     Route: 048
     Dates: end: 20100827
  11. BONALON [Concomitant]
     Route: 048
     Dates: start: 20070112, end: 20100827
  12. ACTEMRA [Suspect]
     Route: 041
     Dates: start: 20100402, end: 20100402
  13. PREDNISOLONE SODIUM SUCCINATE INJ [Concomitant]
     Route: 042
     Dates: start: 20100108, end: 20100108
  14. PREDNISOLONE SODIUM SUCCINATE INJ [Concomitant]
     Route: 042
     Dates: start: 20100205, end: 20100205
  15. LOXONIN [Concomitant]
     Dosage: FORM: PER ORAL AGENT
     Route: 048
  16. ACTEMRA [Suspect]
     Route: 041
     Dates: start: 20091211, end: 20091211
  17. ACTEMRA [Suspect]
     Route: 041
     Dates: start: 20100205, end: 20100205
  18. METOLATE [Concomitant]
     Dosage: FORM: PER ORAL AGENT
     Route: 048
  19. SELBEX [Concomitant]
     Dosage: FORM: PER ORAL AGENT
     Route: 048
  20. ACTONEL [Concomitant]
     Dosage: FORM: PER ORAL AGENT
     Route: 048
  21. TEPRENONE [Concomitant]
     Route: 048
     Dates: end: 20100827
  22. ACTEMRA [Suspect]
     Route: 041
     Dates: start: 20100305, end: 20100305
  23. SIMVASTATIN [Concomitant]
     Dosage: FORM: PER ORAL AGENT
     Route: 048
  24. ACTEMRA [Suspect]
     Indication: RHEUMATOID ARTHRITIS
     Route: 041
     Dates: start: 20091113, end: 20091113
  25. PREDNISOLONE SODIUM SUCCINATE INJ [Concomitant]
     Route: 042
     Dates: start: 20100402, end: 20100402
  26. KENTAN [Concomitant]
     Route: 048
     Dates: end: 20100827

REACTIONS (2)
  - HODGKIN'S DISEASE [None]
  - DIABETES MELLITUS [None]
